FAERS Safety Report 16154751 (Version 1)
Quarter: 2019Q2

REPORT INFORMATION
  Report Type: Spontaneous
  Country: US (occurrence: US)
  Receive Date: 20190403
  Receipt Date: 20190403
  Transmission Date: 20190711
  Serious: Yes (Hospitalization, Other)
  Sender: FDA-Public Use
  Company Number: US-ASTRAZENECA-2019SE49195

PATIENT
  Age: 894 Month
  Sex: Female
  Weight: 65.8 kg

DRUGS (2)
  1. NEXIUM [Suspect]
     Active Substance: ESOMEPRAZOLE MAGNESIUM
     Indication: DYSPEPSIA
     Route: 048
  2. NEXIUM [Suspect]
     Active Substance: ESOMEPRAZOLE MAGNESIUM
     Indication: DYSPEPSIA
     Dosage: GENERIC 40 MG TWO TIMES A DAY
     Route: 048

REACTIONS (20)
  - Precancerous mucosal lesion [Unknown]
  - Abscess limb [Not Recovered/Not Resolved]
  - Weight decreased [Unknown]
  - Body height decreased [Not Recovered/Not Resolved]
  - Chest pain [Unknown]
  - Osteoporosis [Unknown]
  - Osteopenia [Not Recovered/Not Resolved]
  - Dysphonia [Not Recovered/Not Resolved]
  - Decreased appetite [Unknown]
  - Vitamin B12 deficiency [Unknown]
  - Dyspepsia [Unknown]
  - Fall [Recovering/Resolving]
  - Gastrooesophageal sphincter insufficiency [Unknown]
  - Insomnia [Not Recovered/Not Resolved]
  - Contusion [Unknown]
  - Gastrooesophageal reflux disease [Not Recovered/Not Resolved]
  - Hiatus hernia [Unknown]
  - Circumstance or information capable of leading to medication error [Not Recovered/Not Resolved]
  - Intentional product misuse [Recovered/Resolved]
  - Mucosal erosion [Not Recovered/Not Resolved]

NARRATIVE: CASE EVENT DATE: 201810
